FAERS Safety Report 12591773 (Version 1)
Quarter: 2016Q3

REPORT INFORMATION
  Report Type: Spontaneous
  Country: US (occurrence: None)
  Receive Date: 20160725
  Receipt Date: 20160725
  Transmission Date: 20161109
  Serious: Yes (Hospitalization)
  Sender: FDA-Public Use
  Company Number: None

PATIENT
  Age: 77 Year
  Sex: Male
  Weight: 117.94 kg

DRUGS (1)
  1. PICATO [Suspect]
     Active Substance: INGENOL MEBUTATE
     Indication: SKIN CANCER
     Route: 061
     Dates: start: 20151208, end: 20151208

REACTIONS (6)
  - Pruritus [None]
  - Tremor [None]
  - Loss of consciousness [None]
  - Hyperhidrosis [None]
  - Cough [None]
  - Haematochezia [None]

NARRATIVE: CASE EVENT DATE: 20151208
